FAERS Safety Report 7539963-4 (Version None)
Quarter: 2011Q2

REPORT INFORMATION
  Report Type: 
  Country: None (occurrence: None)
  Receive Date: 20110603
  Receipt Date: 20110525
  Transmission Date: 20111010
  Serious: Yes (Hospitalization)
  Sender: FDA-Public Use
  Company Number: US-005436

PATIENT
  Sex: Female
  Weight: 68.0396 kg

DRUGS (3)
  1. TRANEXAMIC ACID [Suspect]
     Indication: MENORRHAGIA
     Dosage: 650 MG, BID, 2 TABLETS,
     Dates: start: 20110519, end: 20110522
  2. TRANEXAMIC ACID [Suspect]
     Indication: MENORRHAGIA
     Dosage: 650 MG, BID, 2 TABLETS,
     Dates: start: 20110401
  3. FERROUS SULFATE TAB [Concomitant]

REACTIONS (2)
  - MYALGIA [None]
  - PULMONARY EMBOLISM [None]
